FAERS Safety Report 14339856 (Version 1)
Quarter: 2017Q4

REPORT INFORMATION
  Report Type: Spontaneous
  Country: GB (occurrence: GB)
  Receive Date: 20171230
  Receipt Date: 20171230
  Transmission Date: 20180321
  Serious: Yes (Hospitalization, Other)
  Sender: FDA-Public Use
  Company Number: GB-MYLANLABS-2017M1083184

PATIENT
  Age: 10 Year
  Sex: Male

DRUGS (4)
  1. METHOTREXATE. [Suspect]
     Active Substance: METHOTREXATE
     Indication: STILL^S DISEASE
     Dosage: 10 MG, UNK
     Route: 058
  2. PREDNISOLONE. [Concomitant]
     Active Substance: PREDNISOLONE
     Indication: STILL^S DISEASE
     Dosage: UNK UNK, QD, 20-30MG
     Route: 048
  3. PREDNISOLONE. [Concomitant]
     Active Substance: PREDNISOLONE
     Dosage: 30 MG, QD
     Route: 065
  4. METHOTREXATE. [Suspect]
     Active Substance: METHOTREXATE
     Dosage: 25 MG, QW, DOSE INCREASED
     Route: 065

REACTIONS (6)
  - Malaise [Recovered/Resolved]
  - Arthralgia [Recovered/Resolved]
  - Skin lesion [Recovered/Resolved]
  - C-reactive protein increased [Recovered/Resolved]
  - Vasculitis [Recovered/Resolved]
  - Rash erythematous [Recovered/Resolved]
